FAERS Safety Report 24400214 (Version 4)
Quarter: 2025Q1

REPORT INFORMATION
  Report Type: Spontaneous
  Country: US (occurrence: US)
  Receive Date: 20241005
  Receipt Date: 20250116
  Transmission Date: 20250409
  Serious: No
  Sender: ROCHE
  Company Number: US-ROCHE-10000093610

PATIENT
  Age: 54 Year
  Sex: Female
  Weight: 58.97 kg

DRUGS (4)
  1. XOLAIR [Suspect]
     Active Substance: OMALIZUMAB
     Indication: Urticaria
     Route: 058
     Dates: start: 202402
  2. XOLAIR [Suspect]
     Active Substance: OMALIZUMAB
     Indication: Urticaria
     Dosage: EVERY 4 WEEKS OR 28 DAYS
     Route: 058
  3. ALLEGRA [Concomitant]
     Active Substance: FEXOFENADINE HYDROCHLORIDE
     Indication: Urticaria
     Dosage: WHEN WALKING IN THE SUN ON A REGULAR DAY
     Route: 048
     Dates: start: 202206
  4. ALLEGRA [Concomitant]
     Active Substance: FEXOFENADINE HYDROCHLORIDE
     Dosage: TWO 180 MG TABLETS PER DOSE (ONCE IN THE MORNING AND EVENING) WHENGOING ON THE BEACH
     Route: 048
     Dates: start: 202206

REACTIONS (6)
  - Device defective [Unknown]
  - Needle issue [Unknown]
  - Product dose omission issue [Unknown]
  - Therapeutic response shortened [Recovered/Resolved]
  - Urticaria [Not Recovered/Not Resolved]
  - Hyperhidrosis [Unknown]

NARRATIVE: CASE EVENT DATE: 20240925
